FAERS Safety Report 11363573 (Version 1)
Quarter: 2015Q3

REPORT INFORMATION
  Report Type: Report from Study
  Country: FR (occurrence: FR)
  Receive Date: 20150811
  Receipt Date: 20150811
  Transmission Date: 20151125
  Serious: Yes (Hospitalization)
  Sender: FDA-Public Use
  Company Number: FR-ACCORD-032936

PATIENT
  Age: 45 Year
  Sex: Male

DRUGS (1)
  1. METHOTREXATE [Suspect]
     Active Substance: METHOTREXATE
     Indication: PSORIASIS
     Dosage: MISADMINISTRATION: 10 MG/D FOR 5 D
     Route: 048

REACTIONS (5)
  - Psoriasis [Recovered/Resolved]
  - Mouth ulceration [Recovered/Resolved]
  - Aspartate aminotransferase increased [Recovering/Resolving]
  - Herpes simplex [Unknown]
  - Intentional product use issue [Unknown]
